FAERS Safety Report 16858062 (Version 1)
Quarter: 2019Q3

REPORT INFORMATION
  Report Type: Spontaneous
  Country: IT (occurrence: IT)
  Receive Date: 20190926
  Receipt Date: 20190926
  Transmission Date: 20191005
  Serious: Yes (Other)
  Sender: FDA-Public Use
  Company Number: IT-GLAXOSMITHKLINE-IT2019GSK172091

PATIENT
  Sex: Male

DRUGS (1)
  1. NIQUITIN MENTA [Suspect]
     Active Substance: NICOTINE
     Indication: SMOKING CESSATION THERAPY
     Dosage: UNK (11-12 DF X DAY) (4 MG PASTIGLIE GUSTO MENTA)
     Route: 048
     Dates: start: 2016

REACTIONS (3)
  - Incorrect product administration duration [Unknown]
  - Therapeutic product effect decreased [Unknown]
  - Drug dependence [Unknown]
